FAERS Safety Report 11108365 (Version 1)
Quarter: 2015Q2

REPORT INFORMATION
  Report Type: Spontaneous
  Country: AT (occurrence: AT)
  Receive Date: 20150512
  Receipt Date: 20150512
  Transmission Date: 20150821
  Serious: Yes (Other)
  Sender: FDA-Public Use
  Company Number: PHHY2015AT044649

PATIENT
  Age: 53 Year
  Sex: Female

DRUGS (12)
  1. BISOPROLOL [Interacting]
     Active Substance: BISOPROLOL
     Indication: BLOOD PRESSURE
     Route: 065
  2. PANTOPRAZOLE [Concomitant]
     Active Substance: PANTOPRAZOLE SODIUM
     Indication: PRODUCT USED FOR UNKNOWN INDICATION
     Dosage: 40 MG, UNK
     Route: 065
  3. OXAZEPAM. [Concomitant]
     Active Substance: OXAZEPAM
     Indication: DRUG WITHDRAWAL SYNDROME
     Route: 065
  4. ABTEI MAGNESIUM [Concomitant]
     Indication: PRODUCT USED FOR UNKNOWN INDICATION
     Dosage: 600 MG, UNK
     Route: 065
  5. ETILEFRINE [Concomitant]
     Active Substance: ETILEFRINE
     Indication: DRUG WITHDRAWAL SYNDROME
     Route: 065
  6. SERTRALINE [Concomitant]
     Active Substance: SERTRALINE HYDROCHLORIDE
     Indication: DEPRESSION
     Dosage: 50 MG, QD
     Route: 065
  7. TIZANIDINE (TIZANIDINE) [Suspect]
     Active Substance: TIZANIDINE
     Indication: PAIN
     Dosage: 2 MG, QD
     Route: 065
  8. TIZANIDINE (TIZANIDINE) [Interacting]
     Active Substance: TIZANIDINE
     Dosage: 80 MG, QD
     Route: 065
  9. ACETIN//ACETYLSALICYLIC ACID [Concomitant]
     Indication: PRODUCT USED FOR UNKNOWN INDICATION
     Dosage: 100 MG, UNK
     Route: 065
  10. NICORANDIL [Concomitant]
     Active Substance: NICORANDIL
     Indication: PRODUCT USED FOR UNKNOWN INDICATION
     Dosage: 10 MG, UNK
     Route: 065
  11. VITAMIN B COMPLEX [Concomitant]
     Active Substance: CYANOCOBALAMIN\DEXPANTHENOL\NIACINAMIDE\PYRIDOXINE HYDROCHLORIDE\RIBOFLAVIN 5^-PHOSPHATE SODIUM\THIAMINE HYDROCHLORIDE\VITAMIN B COMPLEX
     Indication: PRODUCT USED FOR UNKNOWN INDICATION
     Route: 065
  12. LORAZEPAM. [Concomitant]
     Active Substance: LORAZEPAM
     Indication: DRUG WITHDRAWAL SYNDROME
     Route: 042

REACTIONS (13)
  - Delirium [Unknown]
  - Nausea [Unknown]
  - Bradycardia [Unknown]
  - Tremor [Unknown]
  - Restlessness [Unknown]
  - Drug withdrawal syndrome [Unknown]
  - Drug interaction [Unknown]
  - Confusional state [Unknown]
  - Cold sweat [Unknown]
  - Vomiting [Unknown]
  - Disorientation [Unknown]
  - Psychomotor hyperactivity [Unknown]
  - Blood pressure fluctuation [Unknown]
